FAERS Safety Report 4935096-1 (Version None)
Quarter: 2006Q1

REPORT INFORMATION
  Report Type: 
  Country: None (occurrence: None)
  Receive Date: 20060303
  Receipt Date: 20060303
  Transmission Date: 20060701
  Serious: Yes (Life-Threatening)
  Sender: FDA-Public Use
  Company Number: None

PATIENT
  Age: 68 Year
  Sex: Female

DRUGS (1)
  1. LYMPHAZURIN [Suspect]

REACTIONS (3)
  - BRONCHOSPASM [None]
  - SKIN DISCOLOURATION [None]
  - URTICARIA [None]
